FAERS Safety Report 8373219-5 (Version None)
Quarter: 2012Q2

REPORT INFORMATION
  Report Type: 
  Country: None (occurrence: None)
  Receive Date: 20120521
  Receipt Date: 20120515
  Transmission Date: 20120825
  Serious: Yes (Hospitalization)
  Sender: FDA-Public Use
  Company Number: US-BAYER-2012-004090

PATIENT
  Age: 35 Year
  Sex: Female
  Weight: 74.83 kg

DRUGS (2)
  1. YASMIN [Suspect]
     Indication: CONTRACEPTION
     Dosage: UNK
     Route: 048
     Dates: start: 20060101, end: 20070101
  2. AVELOX [Concomitant]

REACTIONS (8)
  - GENERAL PHYSICAL HEALTH DETERIORATION [None]
  - BILE DUCT STONE [None]
  - PANCREATITIS [None]
  - EMOTIONAL DISTRESS [None]
  - ABDOMINAL PAIN [None]
  - ANXIETY [None]
  - MENTAL DISORDER [None]
  - CHOLECYSTITIS [None]
